FAERS Safety Report 4861021-8 (Version None)
Quarter: 2005Q4

REPORT INFORMATION
  Report Type: 
  Country: None (occurrence: None)
  Receive Date: 20051216
  Receipt Date: 20051207
  Transmission Date: 20060501
  Serious: Yes (Other)
  Sender: FDA-Public Use
  Company Number: GB200512001273

PATIENT
  Age: 29 Year
  Weight: 70 kg

DRUGS (4)
  1. CYMBALTA [Suspect]
     Indication: DEPRESSION
     Dosage: 60 MG, EACH MORNING, ORAL
     Route: 048
     Dates: start: 20051003, end: 20051024
  2. RISPERIDONE [Concomitant]
  3. ZOLPIDEM TARTRATE [Concomitant]
  4. DOSULEPIN (DOSULEPIN) [Concomitant]

REACTIONS (3)
  - CONVULSION [None]
  - FALL [None]
  - TREMOR [None]
